FAERS Safety Report 6927200-0 (Version None)
Quarter: 2010Q3

REPORT INFORMATION
  Report Type: 
  Country: None (occurrence: None)
  Receive Date: 20100816
  Receipt Date: 20100809
  Transmission Date: 20110219
  Serious: Yes (Death, Hospitalization, Other)
  Sender: FDA-Public Use
  Company Number: US-ELI_LILLY_AND_COMPANY-US201005003188

PATIENT
  Age: 79 Year
  Sex: Male

DRUGS (9)
  1. GEMCITABINE HCL [Suspect]
     Indication: NON-SMALL CELL LUNG CANCER
     Dosage: 1000 MG/M2, DAYS 1 AND 8 EVERY 21 DAYS
  2. DOCETAXEL [Concomitant]
     Indication: NON-SMALL CELL LUNG CANCER
     Dosage: 30 MG/M2, DAYS 1 AND 8 EVERY 21 DAYS
     Route: 042
  3. CETUXIMAB [Concomitant]
     Indication: NON-SMALL CELL LUNG CANCER
     Dosage: 400 MG/M2, DAY 1 X 1DOSE
     Route: 042
  4. CETUXIMAB [Concomitant]
     Dosage: 250 MG/M2, DAYS 1, 8 AND 15 EVERY 21 DAYS
     Route: 042
  5. DIPHENHYDRAMINE [Concomitant]
     Indication: PROPHYLAXIS
     Dosage: 50 MG, 30-60 MINUTES BEFORE CETUXIMAB
  6. DEXAMETHASONE [Concomitant]
     Indication: PROPHYLAXIS
     Dosage: 20 MG, 12 AND 6 HOURS BEFORE CETUXIMAB
     Route: 048
  7. DEXAMETHASONE [Concomitant]
     Dosage: 4 MG, 12 HRS FOLLOWING DOCETAXEL
     Route: 048
  8. CIMETIDINE [Concomitant]
     Indication: PROPHYLAXIS
     Dosage: 300 MG, 30-60 MIN. PRIOR TO CETUXIMAB
     Route: 042
  9. ANTIEMETICS AND ANTINAUSEANTS [Concomitant]
     Indication: PROPHYLAXIS

REACTIONS (4)
  - ARRHYTHMIA [None]
  - DEHYDRATION [None]
  - DIARRHOEA [None]
  - SINUS TACHYCARDIA [None]
